FAERS Safety Report 21324160 (Version 1)
Quarter: 2022Q3

REPORT INFORMATION
  Report Type: Spontaneous
  Country: US (occurrence: None)
  Receive Date: 20220910
  Receipt Date: 20220910
  Transmission Date: 20221027
  Serious: Yes (unspecified)
  Sender: FDA-Public Use
  Company Number: None

PATIENT
  Age: 16 Year
  Sex: Female
  Weight: 56.25 kg

DRUGS (3)
  1. CHLORHEXIDINE [Suspect]
     Active Substance: CHLORHEXIDINE
     Indication: Wisdom teeth removal
     Dosage: OTHER QUANTITY : 1 TEASPOON(S);?FREQUENCY : TWICE A DAY;?
     Route: 048
  2. INSULIN NOS [Concomitant]
     Active Substance: INSULIN NOS
  3. CGM + INSULIN POD [Concomitant]

REACTIONS (2)
  - Eye swelling [None]
  - Hypersensitivity [None]

NARRATIVE: CASE EVENT DATE: 20220910
